FAERS Safety Report 5928122-4 (Version None)
Quarter: 2008Q4

REPORT INFORMATION
  Report Type: 
  Country: None (occurrence: None)
  Receive Date: 20081022
  Receipt Date: 20081022
  Transmission Date: 20090506
  Serious: No
  Sender: FDA-Public Use
  Company Number: None

PATIENT
  Age: 69 Year
  Sex: Female
  Weight: 68.0396 kg

DRUGS (1)
  1. SIMCOR [Suspect]
     Indication: BLOOD CHOLESTEROL INCREASED
     Dosage: 500MG/20MG AT BEDTIME PO 31/2 MONTHS
     Route: 048
     Dates: start: 20080629, end: 20081013

REACTIONS (5)
  - HAIR GROWTH ABNORMAL [None]
  - MUSCULAR WEAKNESS [None]
  - NAIL GROWTH ABNORMAL [None]
  - PAIN [None]
  - PROTEIN TOTAL ABNORMAL [None]
